FAERS Safety Report 5721696-8 (Version None)
Quarter: 2008Q2

REPORT INFORMATION
  Report Type: 
  Country: None (occurrence: None)
  Receive Date: 20080429
  Receipt Date: 20070430
  Transmission Date: 20081010
  Serious: No
  Sender: FDA-Public Use
  Company Number: US-ASTRAZENECA-2007UW08809

PATIENT
  Age: 56 Year
  Sex: Female
  Weight: 56.2 kg

DRUGS (4)
  1. NEXIUM [Suspect]
     Indication: GASTROOESOPHAGEAL REFLUX DISEASE
  2. FEMHRT [Concomitant]
  3. ACTONEL [Concomitant]
  4. CALCIUM [Concomitant]

REACTIONS (5)
  - ABDOMINAL DISTENSION [None]
  - CHEST PAIN [None]
  - FLATULENCE [None]
  - HYPOGLYCAEMIA [None]
  - NAUSEA [None]
